FAERS Safety Report 7095305-2 (Version None)
Quarter: 2010Q4

REPORT INFORMATION
  Report Type: 
  Country: None (occurrence: None)
  Receive Date: 20101111
  Receipt Date: 20091229
  Transmission Date: 20110411
  Serious: No
  Sender: FDA-Public Use
  Company Number: US-BAYER-201010228NA

PATIENT
  Age: 24 Year
  Sex: Female

DRUGS (1)
  1. MIRENA [Suspect]
     Indication: CONTRACEPTION
     Dosage: FREQUENCY: CONTINUOUS
     Route: 015
     Dates: start: 20070101

REACTIONS (5)
  - BLOOD DISORDER [None]
  - HAEMOGLOBIN URINE PRESENT [None]
  - MEAN CELL HAEMOGLOBIN INCREASED [None]
  - PROTEIN URINE PRESENT [None]
  - URINARY CASTS PRESENT [None]
